FAERS Safety Report 23307516 (Version 1)
Quarter: 2023Q4

REPORT INFORMATION
  Report Type: Spontaneous
  Country: GB (occurrence: None)
  Receive Date: 20231215
  Receipt Date: 20231215
  Transmission Date: 20240109
  Serious: Yes (Life-Threatening, Hospitalization, Disabling)
  Sender: FDA-Public Use
  Company Number: None

PATIENT
  Age: 70 Year
  Sex: Female
  Weight: 65.25 kg

DRUGS (11)
  1. CIPROFLOXACIN [Suspect]
     Active Substance: CIPROFLOXACIN
     Indication: Wound
     Dosage: OTHER QUANTITY : 1 CAPSULE(S);?OTHER FREQUENCY : ONLY 2 GIVEN;?
     Route: 048
  2. Schuessler tissue salts [Concomitant]
  3. Unshine salt [Concomitant]
  4. Engevita [Concomitant]
  5. B12 [Concomitant]
  6. VITAMIN C [Concomitant]
     Active Substance: ASCORBIC ACID
  7. BREWERS YEAST [Concomitant]
     Active Substance: SACCHAROMYCES CEREVISIAE
  8. MAGNESIUM [Concomitant]
     Active Substance: MAGNESIUM
  9. glycinate [Concomitant]
  10. VITAMIN D [Concomitant]
     Active Substance: VITAMIN D NOS
  11. JWH-018 [Concomitant]
     Active Substance: JWH-018

REACTIONS (34)
  - Product communication issue [None]
  - Amnesia [None]
  - Headache [None]
  - Vision blurred [None]
  - Dysstasia [None]
  - Balance disorder [None]
  - Paraesthesia [None]
  - Aphasia [None]
  - Seizure [None]
  - Anaphylactic shock [None]
  - Confusional state [None]
  - Hypersomnia [None]
  - Asthenia [None]
  - Phobia [None]
  - Chest pain [None]
  - Back pain [None]
  - Ligament laxity [None]
  - Migraine [None]
  - Pain [None]
  - Eye haemorrhage [None]
  - Cataract [None]
  - Diarrhoea [None]
  - Palpitations [None]
  - Depressed mood [None]
  - Asthenia [None]
  - Nightmare [None]
  - Anxiety [None]
  - Muscle spasms [None]
  - Poor quality sleep [None]
  - Fatigue [None]
  - Muscle spasms [None]
  - Musculoskeletal stiffness [None]
  - Joint range of motion decreased [None]
  - Dysphagia [None]

NARRATIVE: CASE EVENT DATE: 20211124
